FAERS Safety Report 19107288 (Version 1)
Quarter: 2021Q2

REPORT INFORMATION
  Report Type: Spontaneous
  Country: CH (occurrence: CH)
  Receive Date: 20210408
  Receipt Date: 20210408
  Transmission Date: 20210717
  Serious: Yes (Other)
  Sender: FDA-Public Use
  Company Number: CH-MICRO LABS LIMITED-ML2021-01044

PATIENT

DRUGS (3)
  1. DICLOFENAC [Suspect]
     Active Substance: DICLOFENAC
  2. DAPTOMYCIN. [Suspect]
     Active Substance: DAPTOMYCIN
  3. SULFAMETHOXAZOL [Suspect]
     Active Substance: SULFAMETHOXAZOLE

REACTIONS (1)
  - Drug reaction with eosinophilia and systemic symptoms [Unknown]
